FAERS Safety Report 19731371 (Version 1)
Quarter: 2021Q3

REPORT INFORMATION
  Report Type: Spontaneous
  Country: US (occurrence: US)
  Receive Date: 20210820
  Receipt Date: 20210820
  Transmission Date: 20211014
  Serious: Yes (Hospitalization)
  Sender: FDA-Public Use
  Company Number: None

PATIENT
  Age: 61 Year
  Sex: Female

DRUGS (1)
  1. VERZENIO [Suspect]
     Active Substance: ABEMACICLIB
     Indication: BREAST CANCER
     Dosage: 150MG 1 TABLET TWICE A DAY ORAL?
     Route: 048
     Dates: start: 20210511, end: 20210517

REACTIONS (1)
  - Disease progression [None]

NARRATIVE: CASE EVENT DATE: 20210517
